FAERS Safety Report 7968634-5 (Version None)
Quarter: 2011Q4

REPORT INFORMATION
  Report Type: 
  Country: None (occurrence: None)
  Receive Date: 20111209
  Receipt Date: 20111202
  Transmission Date: 20120403
  Serious: Yes (Hospitalization)
  Sender: FDA-Public Use
  Company Number: US-GLAXOSMITHKLINE-A0883355A

PATIENT
  Age: 68 Year
  Sex: Male

DRUGS (1)
  1. AVANDIA [Suspect]
     Indication: HYPERGLYCAEMIA
     Dosage: 4MG TWICE PER DAY
     Route: 048
     Dates: start: 20010101

REACTIONS (1)
  - MYOCARDIAL INFARCTION [None]
